FAERS Safety Report 16560034 (Version 1)
Quarter: 2019Q3

REPORT INFORMATION
  Report Type: Spontaneous
  Country: US (occurrence: US)
  Receive Date: 20190711
  Receipt Date: 20190711
  Transmission Date: 20191004
  Serious: No
  Sender: FDA-Public Use
  Company Number: US-BIOGEN-2019BI00758105

PATIENT
  Age: 60 Year
  Sex: Female

DRUGS (2)
  1. PLEGRIDY [Suspect]
     Active Substance: PEGINTERFERON BETA-1A
     Indication: MULTIPLE SCLEROSIS
     Route: 065
     Dates: start: 20150521, end: 20160913
  2. PLEGRIDY [Suspect]
     Active Substance: PEGINTERFERON BETA-1A
     Route: 058

REACTIONS (6)
  - Fall [Recovered/Resolved]
  - Peroneal nerve palsy [Not Recovered/Not Resolved]
  - Device malfunction [Unknown]
  - Gait disturbance [Not Recovered/Not Resolved]
  - Product dose omission [Not Recovered/Not Resolved]
  - Upper limb fracture [Recovered/Resolved with Sequelae]

NARRATIVE: CASE EVENT DATE: 20190628
